FAERS Safety Report 16984210 (Version 1)
Quarter: 2019Q4

REPORT INFORMATION
  Report Type: Spontaneous
  Country: US (occurrence: US)
  Receive Date: 20191101
  Receipt Date: 20191101
  Transmission Date: 20200122
  Serious: No
  Sender: FDA-Public Use
  Company Number: US-FARMAPROD-201904-0599

PATIENT
  Age: 68 Year
  Sex: Female

DRUGS (6)
  1. OXERVATE [Suspect]
     Active Substance: CENEGERMIN-BKBJ
     Indication: NEUROTROPHIC KERATOPATHY
     Route: 047
     Dates: start: 201904, end: 20190418
  2. VITAL TEARS [Concomitant]
  3. LOSARTAN. [Concomitant]
     Active Substance: LOSARTAN
  4. SINGULAIR [Concomitant]
     Active Substance: MONTELUKAST SODIUM
  5. NOVOLOG [Concomitant]
     Active Substance: INSULIN ASPART
  6. LANTUS [Concomitant]
     Active Substance: INSULIN GLARGINE

REACTIONS (7)
  - Tremor [Recovered/Resolved]
  - Fall [Recovered/Resolved]
  - Dysarthria [Recovered/Resolved]
  - Concussion [Recovered/Resolved]
  - Balance disorder [Recovered/Resolved]
  - Vomiting [Recovered/Resolved]
  - Asthenia [Unknown]

NARRATIVE: CASE EVENT DATE: 20190414
